FAERS Safety Report 9989031 (Version 2)
Quarter: 2014Q1

REPORT INFORMATION
  Report Type: Report from Study
  Country: US (occurrence: US)
  Receive Date: 20140310
  Receipt Date: 20140310
  Transmission Date: 20141002
  Serious: No
  Sender: FDA-Public Use
  Company Number: US-ABBVIE-09P-163-0575517-00

PATIENT
  Age: 60 Year
  Sex: Male
  Weight: 81.72 kg

DRUGS (1)
  1. HUMIRA [Suspect]
     Indication: ANKYLOSING SPONDYLITIS
     Dates: start: 20081201

REACTIONS (3)
  - Uveitis [Recovered/Resolved]
  - Dry eye [Not Recovered/Not Resolved]
  - Dry eye [Recovering/Resolving]
